FAERS Safety Report 16638270 (Version 1)
Quarter: 2019Q3

REPORT INFORMATION
  Report Type: Spontaneous
  Country: RO (occurrence: RO)
  Receive Date: 20190726
  Receipt Date: 20190726
  Transmission Date: 20191004
  Serious: Yes (Death)
  Sender: FDA-Public Use
  Company Number: RO-ASTRAZENECA-2019SF07380

PATIENT
  Age: 68 Year
  Sex: Male

DRUGS (9)
  1. SORTIS [Concomitant]
     Active Substance: ATORVASTATIN
  2. MONONITRON [Concomitant]
  3. PRESTARIUM [Concomitant]
     Active Substance: PERINDOPRIL
  4. PREDUCTAL [Concomitant]
     Active Substance: TRIMETAZIDINE DIHYDROCHLORIDE
  5. BRILIQUE [Suspect]
     Active Substance: TICAGRELOR
     Indication: VASCULAR DEVICE USER
     Route: 048
     Dates: start: 201811
  6. IVABRADINE [Concomitant]
     Active Substance: IVABRADINE
  7. ASPENTER [Concomitant]
     Active Substance: ASPIRIN
  8. BRILIQUE [Suspect]
     Active Substance: TICAGRELOR
     Indication: ACUTE MYOCARDIAL INFARCTION
     Route: 048
     Dates: start: 201811
  9. SPIRONOLACTONE. [Concomitant]
     Active Substance: SPIRONOLACTONE

REACTIONS (1)
  - Death [Fatal]

NARRATIVE: CASE EVENT DATE: 20190429
